FAERS Safety Report 5230517-1 (Version None)
Quarter: 2007Q1

REPORT INFORMATION
  Report Type: 
  Country: None (occurrence: None)
  Receive Date: 20070202
  Receipt Date: 20070118
  Transmission Date: 20070707
  Serious: Yes (Hospitalization, Other)
  Sender: FDA-Public Use
  Company Number: 2007BI001275

PATIENT
  Age: 72 Year
  Sex: Female

DRUGS (4)
  1. AVONEX [Suspect]
     Indication: MULTIPLE SCLEROSIS
     Dosage: QW; IM
     Route: 030
     Dates: start: 20040201
  2. PROPATYLNITRATE [Concomitant]
  3. LANETROP (CARDIAC DISORDER) [Concomitant]
  4. EMALABAL (CARDIAC DISORDER) [Concomitant]

REACTIONS (7)
  - ARTHRALGIA [None]
  - CATARACT [None]
  - CORONARY ARTERY OCCLUSION [None]
  - DIZZINESS [None]
  - FATIGUE [None]
  - HEADACHE [None]
  - MYALGIA [None]
